FAERS Safety Report 5355437-3 (Version None)
Quarter: 2007Q2

REPORT INFORMATION
  Report Type: 
  Country: None (occurrence: None)
  Receive Date: 20070530
  Receipt Date: 20070117
  Transmission Date: 20071010
  Serious: Yes (Other)
  Sender: FDA-Public Use
  Company Number: US200609003453

PATIENT
  Age: 44 Year
  Sex: Female
  Weight: 101.6 kg

DRUGS (1)
  1. ZYPREXA [Suspect]
     Dates: start: 20020101, end: 20050901

REACTIONS (4)
  - BLOOD CHOLESTEROL INCREASED [None]
  - BLOOD TRIGLYCERIDES INCREASED [None]
  - DIABETES MELLITUS [None]
  - METABOLIC DISORDER [None]
